FAERS Safety Report 8561309-3 (Version None)
Quarter: 2012Q3

REPORT INFORMATION
  Report Type: 
  Country: None (occurrence: None)
  Receive Date: 20120802
  Receipt Date: 20120720
  Transmission Date: 20120928
  Serious: Yes (Other)
  Sender: FDA-Public Use
  Company Number: JP-009507513-1207JPN011719

PATIENT

DRUGS (6)
  1. LUTORAL (CHLORMADINONE ACETATE) [Concomitant]
     Indication: IN VITRO FERTILISATION
     Dosage: DIVIDED DOSE FREQUENCY U
     Route: 048
     Dates: start: 20110902, end: 20110915
  2. MENOTROPINS [Concomitant]
     Indication: IN VITRO FERTILISATION
     Route: 030
     Dates: start: 20110528, end: 20110529
  3. GONADOTROPIN, CHORIONIC [Concomitant]
     Indication: IN VITRO FERTILISATION
     Route: 030
     Dates: start: 20110906, end: 20110906
  4. GANIREST SUBCUTANEOUS 0.25MG SYRINGE [Suspect]
     Route: 058
     Dates: start: 20110527, end: 20110529
  5. GONAPURE [Concomitant]
     Indication: IN VITRO FERTILISATION
     Route: 030
     Dates: start: 20110520, end: 20110527
  6. GONADOTROPIN, CHORIONIC [Concomitant]
     Indication: OVULATION INDUCTION
     Route: 030
     Dates: start: 20110530, end: 20110530

REACTIONS (1)
  - ABORTION [None]
